FAERS Safety Report 5364807-9 (Version None)
Quarter: 2007Q2

REPORT INFORMATION
  Report Type: 
  Country: None (occurrence: None)
  Receive Date: 20070621
  Receipt Date: 20070613
  Transmission Date: 20071010
  Serious: Yes (Other)
  Sender: FDA-Public Use
  Company Number: PHFR2006GB03751

PATIENT
  Age: 40 Year
  Sex: Male

DRUGS (3)
  1. CLOZARIL [Suspect]
     Indication: SCHIZOPHRENIA
     Dosage: 625MG/DAY
     Route: 048
     Dates: start: 20050923
  2. DIAZEPAM [Concomitant]
  3. CITALOPRAM HYDROBROMIDE [Concomitant]
     Indication: DEPRESSION
     Dosage: 40MG / DAY
     Route: 048
     Dates: start: 20060101

REACTIONS (10)
  - COORDINATION ABNORMAL [None]
  - DRUG TOXICITY [None]
  - DYSARTHRIA [None]
  - GENERAL PHYSICAL HEALTH DETERIORATION [None]
  - HEPATITIS C [None]
  - LIVER FUNCTION TEST ABNORMAL [None]
  - MYOCLONUS [None]
  - PALLOR [None]
  - SALIVARY HYPERSECRETION [None]
  - WEIGHT DECREASED [None]
